FAERS Safety Report 25858171 (Version 2)
Quarter: 2025Q4

REPORT INFORMATION
  Report Type: Report from Study
  Country: US (occurrence: US)
  Receive Date: 20250929
  Receipt Date: 20251007
  Transmission Date: 20260119
  Serious: Yes (Hospitalization)
  Sender: ABBVIE
  Company Number: US-ABBVIE-6479758

PATIENT
  Age: 75 Year
  Sex: Male

DRUGS (1)
  1. VYALEV [Suspect]
     Active Substance: FOSCARBIDOPA\FOSLEVODOPA
     Indication: Parkinson^s disease
     Dosage: FREQUENCY: CONTINUOUS 24-HOUR INFUSION
     Route: 058
     Dates: start: 20250714

REACTIONS (3)
  - Fall [Recovering/Resolving]
  - Craniofacial fracture [Recovering/Resolving]
  - Fractured coccyx [Recovering/Resolving]

NARRATIVE: CASE EVENT DATE: 20250924
